FAERS Safety Report 5492789-8 (Version None)
Quarter: 2007Q4

REPORT INFORMATION
  Report Type: 
  Country: None (occurrence: None)
  Receive Date: 20071023
  Receipt Date: 20071016
  Transmission Date: 20080405
  Serious: Yes (Hospitalization, Other)
  Sender: FDA-Public Use
  Company Number: US-JNJFOC-20071004631

PATIENT
  Age: 100 Year
  Sex: Female
  Weight: 60.78 kg

DRUGS (3)
  1. LEVAQUIN [Suspect]
     Indication: URINARY TRACT INFECTION
     Route: 048
  2. ATIVAN [Concomitant]
     Indication: ANXIETY
     Route: 065
  3. LASIX [Concomitant]
     Indication: PULMONARY OEDEMA
     Route: 065

REACTIONS (4)
  - DYSPNOEA [None]
  - HYPERSENSITIVITY [None]
  - PNEUMONIA ASPIRATION [None]
  - VOMITING [None]
